FAERS Safety Report 8974562 (Version 1)
Quarter: 2012Q4

REPORT INFORMATION
  Report Type: 
  Country: US (occurrence: US)
  Receive Date: 20121219
  Receipt Date: 20121219
  Transmission Date: 20130627
  Serious: No
  Sender: FDA-Public Use
  Company Number: US-ASTRAZENECA-2012SE93008

PATIENT
  Age: 52 Year
  Sex: Female
  Weight: 122.5 kg

DRUGS (1)
  1. CRESTOR [Suspect]
     Indication: BLOOD CHOLESTEROL INCREASED
     Route: 048
     Dates: start: 201203, end: 201203

REACTIONS (21)
  - Abdominal distension [Unknown]
  - Oedema peripheral [Unknown]
  - Oedema peripheral [Unknown]
  - Pelvic discomfort [Unknown]
  - Bladder spasm [Unknown]
  - Bladder dilatation [Unknown]
  - Tachycardia [Unknown]
  - Dehydration [Unknown]
  - Blood test abnormal [Unknown]
  - Blood urea abnormal [Unknown]
  - Blood creatinine abnormal [Unknown]
  - Haematuria [Unknown]
  - Hypernatraemia [Unknown]
  - Urine analysis abnormal [Unknown]
  - Cystitis [Unknown]
  - Abdominal pain [Unknown]
  - Blood bilirubin increased [Unknown]
  - Proteinuria [Unknown]
  - Arthralgia [Unknown]
  - Arthralgia [Unknown]
  - Myalgia [Unknown]
